FAERS Safety Report 6934685-2 (Version None)
Quarter: 2010Q3

REPORT INFORMATION
  Report Type: 
  Country: None (occurrence: None)
  Receive Date: 20100820
  Receipt Date: 20100809
  Transmission Date: 20110219
  Serious: Yes (Other)
  Sender: FDA-Public Use
  Company Number: NZ-ALLERGAN-1010279US

PATIENT
  Age: 52 Year
  Sex: Female

DRUGS (5)
  1. CYCLOSPORINE 0.05% EML [Suspect]
     Indication: KERATITIS
     Dosage: UNK
     Route: 047
     Dates: start: 20091201, end: 20100719
  2. CYCLOSPORINE 0.05% EML [Suspect]
     Indication: HYPERSENSITIVITY
  3. PRED MILD [Concomitant]
     Indication: KERATITIS
     Dosage: 1 GTT, QID
     Route: 047
     Dates: start: 20091201
  4. PRED MILD [Concomitant]
     Dosage: 1 GTT, QD
     Route: 047
  5. SERUM DROPS [Concomitant]
     Indication: KERATITIS
     Dosage: 1 GTT, QID
     Route: 047
     Dates: start: 20091201

REACTIONS (5)
  - EYE INFLAMMATION [None]
  - HYPERSENSITIVITY [None]
  - OCULAR DISCOMFORT [None]
  - PUNCTATE KERATITIS [None]
  - ULCERATIVE KERATITIS [None]
